FAERS Safety Report 9506561 (Version 1)
Quarter: 2013Q1

REPORT INFORMATION
  Report Type: Spontaneous
  Country: US (occurrence: None)
  Receive Date: 20130305
  Receipt Date: 20130305
  Transmission Date: 20140127
  Serious: Yes (Hospitalization)
  Sender: FDA-Public Use
  Company Number: 163-21880-12030194

PATIENT
  Age: 34 Year
  Sex: Male

DRUGS (5)
  1. REVLIMID (LENALIDOMIDE) (CAPSULES) [Suspect]
     Indication: HODGKIN^S DISEASE
     Dosage: 15 MG, X 21 DAYS, PO
     Route: 048
     Dates: start: 20111215, end: 20120301
  2. ACYCLOVIR (ACICLOVIR) (CAPSULES) [Concomitant]
  3. POTASSIUM (POTASSIUM) (UNKNOWN) [Concomitant]
  4. ADVAIR (SERETIDE MITE) [Concomitant]
  5. STEROID (CORTICOSTEROIDS) [Concomitant]

REACTIONS (2)
  - Lobar pneumonia [None]
  - Pneumonia [None]
